FAERS Safety Report 21834128 (Version 7)
Quarter: 2025Q2

REPORT INFORMATION
  Report Type: Spontaneous
  Country: US (occurrence: US)
  Receive Date: 20230108
  Receipt Date: 20250522
  Transmission Date: 20250716
  Serious: Yes (Hospitalization)
  Sender: ROCHE
  Company Number: US-ROCHE-3125707

PATIENT
  Age: 58 Year
  Sex: Male
  Weight: 90.72 kg

DRUGS (9)
  1. HEMLIBRA [Suspect]
     Active Substance: EMICIZUMAB-KXWH
     Indication: Factor VIII deficiency
     Dosage: STRENGTH: 105/0.7 ML
     Route: 058
     Dates: start: 202203
  2. HEMLIBRA [Suspect]
     Active Substance: EMICIZUMAB-KXWH
     Dosage: STRENGTH: 150MG/ML
     Route: 058
     Dates: start: 202203
  3. HEMLIBRA [Suspect]
     Active Substance: EMICIZUMAB-KXWH
     Dosage: STRENGTH- 105 MG/0.7 ML, 150 MG/ML
     Route: 058
     Dates: start: 20220524
  4. HEMLIBRA [Suspect]
     Active Substance: EMICIZUMAB-KXWH
     Dosage: STRENGTH- 105 MG/0.7 ML
     Route: 058
     Dates: start: 202103
  5. HEMLIBRA [Suspect]
     Active Substance: EMICIZUMAB-KXWH
     Dosage: STRENGTH- 60 MG/0.4 ML
     Route: 058
     Dates: start: 202103
  6. HEMLIBRA [Suspect]
     Active Substance: EMICIZUMAB-KXWH
     Dosage: COMBINE 1 VIAL OF 105MG AND 3 VIALS OF 60MG. SINGLE USE VIALS.
     Route: 058
  7. HEMLIBRA [Suspect]
     Active Substance: EMICIZUMAB-KXWH
     Dosage: STRENGTH- 105MG/0.7ML
     Route: 058
     Dates: start: 202103
  8. HEMLIBRA [Suspect]
     Active Substance: EMICIZUMAB-KXWH
     Dosage: STRENGTH: 12MG/0.4ML
     Route: 058
     Dates: start: 202103
  9. OXYCODONE [Concomitant]
     Active Substance: OXYCODONE
     Indication: Pain

REACTIONS (7)
  - Haemorrhage [Recovered/Resolved]
  - COVID-19 [Unknown]
  - Haemorrhage [Unknown]
  - Haemorrhage [Unknown]
  - Pain [Unknown]
  - Haemorrhage [Unknown]
  - Off label use [Unknown]

NARRATIVE: CASE EVENT DATE: 20250331
